FAERS Safety Report 6816158-0 (Version None)
Quarter: 2010Q3

REPORT INFORMATION
  Report Type: 
  Country: None (occurrence: None)
  Receive Date: 20100702
  Receipt Date: 20100702
  Transmission Date: 20110219
  Serious: Yes (Life-Threatening, Hospitalization, Disabling)
  Sender: FDA-Public Use
  Company Number: None

PATIENT
  Age: 22 Year
  Sex: Female
  Weight: 99.7913 kg

DRUGS (1)
  1. YASMIN [Suspect]
     Dosage: ONCE DAILY

REACTIONS (1)
  - CHOLELITHIASIS [None]
